FAERS Safety Report 25737660 (Version 1)
Quarter: 2025Q3

REPORT INFORMATION
  Report Type: Report from Study
  Country: US (occurrence: US)
  Receive Date: 20250828
  Receipt Date: 20250828
  Transmission Date: 20251021
  Serious: Yes (Other)
  Sender: BIOGEN
  Company Number: US-BIOGEN-2025BI01321941

PATIENT
  Sex: Female

DRUGS (1)
  1. VUMERITY [Suspect]
     Active Substance: DIROXIMEL FUMARATE
     Indication: Multiple sclerosis
     Route: 050
     Dates: start: 20210316

REACTIONS (11)
  - Systemic lupus erythematosus [Unknown]
  - Multiple sclerosis relapse [Not Recovered/Not Resolved]
  - Intervertebral disc protrusion [Unknown]
  - Urinary incontinence [Unknown]
  - Crying [Unknown]
  - Fear [Unknown]
  - Nightmare [Unknown]
  - Anxiety [Unknown]
  - Panic attack [Unknown]
  - Neuropathy peripheral [Unknown]
  - Vomiting [Unknown]
